FAERS Safety Report 26125147 (Version 2)
Quarter: 2025Q4

REPORT INFORMATION
  Report Type: Report from Study
  Country: CA (occurrence: CA)
  Receive Date: 20251205
  Receipt Date: 20251216
  Transmission Date: 20260118
  Serious: Yes (Other)
  Sender: CELLTRION
  Company Number: CA-CELLTRION INC.-2025CA018986

PATIENT

DRUGS (4)
  1. INFLIXIMAB-DYYB [Suspect]
     Active Substance: INFLIXIMAB-DYYB
     Indication: Crohn^s disease
     Dosage: 900 MG
     Route: 042
     Dates: start: 20250612
  2. INFLIXIMAB-DYYB [Suspect]
     Active Substance: INFLIXIMAB-DYYB
     Dosage: 900 MG, EVERY 6 WEEKS (MAINTENANCE)
     Route: 042
  3. INFLIXIMAB-DYYB [Suspect]
     Active Substance: INFLIXIMAB-DYYB
     Dosage: 900 MG, EVERY 6 WEEKS (MAINTENANCE)
     Route: 042
     Dates: start: 20250612, end: 202512
  4. INFLIXIMAB-DYYB [Suspect]
     Active Substance: INFLIXIMAB-DYYB
     Dosage: 900 MG, EVERY 6 WEEKS (MAINTENANCE)
     Route: 042
     Dates: start: 20250612, end: 202512

REACTIONS (5)
  - Peripheral swelling [Recovered/Resolved]
  - Pain in extremity [Recovered/Resolved]
  - Drug ineffective [Not Recovered/Not Resolved]
  - Overdose [Unknown]
  - Off label use [Unknown]

NARRATIVE: CASE EVENT DATE: 20250101
